FAERS Safety Report 24701276 (Version 2)
Quarter: 2024Q4

REPORT INFORMATION
  Report Type: Spontaneous
  Country: US (occurrence: US)
  Receive Date: 20241205
  Receipt Date: 20241218
  Transmission Date: 20250115
  Serious: Yes (Other)
  Sender: JOHNSON AND JOHNSON
  Company Number: US-KENVUE CANADA INC.-20241032976

PATIENT
  Age: 1 Decade
  Sex: Male

DRUGS (1)
  1. ACETAMINOPHEN [Suspect]
     Active Substance: ACETAMINOPHEN
     Indication: Product used for unknown indication
     Dosage: UNKNOWN
     Route: 065
     Dates: start: 2023

REACTIONS (3)
  - Throat tightness [Recovering/Resolving]
  - Drug hypersensitivity [Recovering/Resolving]
  - Allergic reaction to excipient [Unknown]

NARRATIVE: CASE EVENT DATE: 20230101
